FAERS Safety Report 14734285 (Version 6)
Quarter: 2019Q1

REPORT INFORMATION
  Report Type: Report from Study
  Country: US (occurrence: US)
  Receive Date: 20180409
  Receipt Date: 20190309
  Transmission Date: 20190417
  Serious: Yes (Hospitalization)
  Sender: FDA-Public Use
  Company Number: US-B.I. PHARMACEUTICALS,INC./RIDGEFIELD-2017-BI-046270

PATIENT
  Sex: Male

DRUGS (2)
  1. XARELTO [Concomitant]
     Active Substance: RIVAROXABAN
     Indication: PRODUCT USED FOR UNKNOWN INDICATION
     Route: 065
  2. OFEV [Suspect]
     Active Substance: NINTEDANIB
     Indication: IDIOPATHIC PULMONARY FIBROSIS
     Route: 048
     Dates: start: 20170615

REACTIONS (14)
  - Oxygen saturation decreased [Recovering/Resolving]
  - Diarrhoea [Not Recovered/Not Resolved]
  - Dyspnoea [Unknown]
  - Large intestine operation [Unknown]
  - Influenza [Unknown]
  - Platelet count decreased [Unknown]
  - Pneumonia [Unknown]
  - Subcutaneous abscess [Unknown]
  - Abdominal discomfort [Unknown]
  - Thrombosis [Unknown]
  - Bronchitis [Unknown]
  - Nail discolouration [Unknown]
  - Lung transplant [Unknown]
  - Cough [Unknown]
